FAERS Safety Report 25786135 (Version 1)
Quarter: 2025Q3

REPORT INFORMATION
  Report Type: Spontaneous
  Country: US (occurrence: None)
  Receive Date: 20250909
  Receipt Date: 20250909
  Transmission Date: 20251021
  Serious: Yes (Other)
  Sender: FDA-CTU
  Company Number: None

PATIENT

DRUGS (3)
  1. SOTATERCEPT [Suspect]
     Active Substance: SOTATERCEPT
     Indication: Pulmonary hypertension
     Route: 058
     Dates: start: 20241015, end: 20250908
  2. MACITENTAN [Concomitant]
     Active Substance: MACITENTAN
  3. TADALAFIL [Concomitant]
     Active Substance: TADALAFIL

REACTIONS (5)
  - Fatigue [None]
  - Dizziness [None]
  - Cyanosis [None]
  - Ventilation perfusion mismatch [None]
  - Hypoxia [None]

NARRATIVE: CASE EVENT DATE: 20250828
